FAERS Safety Report 4848362-5 (Version None)
Quarter: 2005Q4

REPORT INFORMATION
  Report Type: 
  Country: None (occurrence: None)
  Receive Date: 20051207
  Receipt Date: 20051207
  Transmission Date: 20060501
  Serious: Yes (Hospitalization)
  Sender: FDA-Public Use
  Company Number: None

PATIENT
  Sex: Female
  Weight: 79.3795 kg

DRUGS (2)
  1. ZOLOFT [Suspect]
     Indication: DEPRESSION
     Dosage: 50MG DAILY
     Dates: start: 20000901, end: 20051101
  2. ZOLOFT [Suspect]
     Dosage: 25 MG EVERY OTHER DAY

REACTIONS (4)
  - DRUG WITHDRAWAL SYNDROME [None]
  - DYSARTHRIA [None]
  - MYALGIA [None]
  - WEIGHT INCREASED [None]
